FAERS Safety Report 8048511-4 (Version None)
Quarter: 2012Q1

REPORT INFORMATION
  Report Type: 
  Country: None (occurrence: None)
  Receive Date: 20120117
  Receipt Date: 20120106
  Transmission Date: 20120608
  Serious: Yes (Hospitalization, Other)
  Sender: FDA-Public Use
  Company Number: BE-ELI_LILLY_AND_COMPANY-BE201201002121

PATIENT
  Sex: Female

DRUGS (3)
  1. FORTEO [Suspect]
     Dosage: UNK
     Dates: start: 20110404
  2. ASAFLOW [Concomitant]
  3. LIPITOR [Concomitant]

REACTIONS (4)
  - FACIAL BONES FRACTURE [None]
  - UPPER LIMB FRACTURE [None]
  - PELVIC FRACTURE [None]
  - FALL [None]
